FAERS Safety Report 5862118-6 (Version None)
Quarter: 2008Q3

REPORT INFORMATION
  Report Type: 
  Country: None (occurrence: None)
  Receive Date: 20080826
  Receipt Date: 20080811
  Transmission Date: 20090109
  Serious: Yes (Death)
  Sender: FDA-Public Use
  Company Number: 2008001977

PATIENT
  Age: 67 Year
  Sex: Female

DRUGS (4)
  1. ERLOTINIB (ERLOTINIB)(TABLET) (ERLOTINIB) [Suspect]
     Indication: NON-SMALL CELL LUNG CANCER
     Dosage: (150 MG,QD), ORAL
     Dates: start: 20080328, end: 20080430
  2. LOXONIN (LOXOPROFEN SODIUM) [Concomitant]
  3. MUCOSAL (ACETYLCYSTEINE) [Concomitant]
  4. MUCODYNE (CARBOCISTEINE) [Concomitant]

REACTIONS (4)
  - ANAEMIA [None]
  - DIARRHOEA [None]
  - HAEMATOCHEZIA [None]
  - SHOCK HAEMORRHAGIC [None]
